FAERS Safety Report 20516245 (Version 1)
Quarter: 2022Q1

REPORT INFORMATION
  Report Type: Spontaneous
  Country: DE (occurrence: DE)
  Receive Date: 20220225
  Receipt Date: 20220225
  Transmission Date: 20220423
  Serious: Yes (Other)
  Sender: FDA-Public Use
  Company Number: DE-DCGMA-22196142

PATIENT
  Age: 56 Year
  Sex: Male
  Weight: 102 kg

DRUGS (3)
  1. IBUPROFEN [Suspect]
     Active Substance: IBUPROFEN
     Indication: Infection
     Dosage: UNIT DOSE 600MG,USE IN ACUTE INFECTIONS
     Route: 048
  2. FINGOLIMOD [Suspect]
     Active Substance: FINGOLIMOD
     Indication: Multiple sclerosis
     Route: 058
  3. SPIKEVAX [Suspect]
     Active Substance: ELASOMERAN
     Indication: Immunisation
     Dosage: UNIT DOSE 0.25ML
     Route: 030

REACTIONS (1)
  - Transaminases increased [Recovered/Resolved]

NARRATIVE: CASE EVENT DATE: 20211216
